FAERS Safety Report 4788301-9 (Version None)
Quarter: 2005Q4

REPORT INFORMATION
  Report Type: 
  Country: None (occurrence: None)
  Receive Date: 20051003
  Receipt Date: 20050912
  Transmission Date: 20060501
  Serious: Yes (Hospitalization)
  Sender: FDA-Public Use
  Company Number: 417361

PATIENT
  Age: 63 Year
  Sex: Male

DRUGS (1)
  1. ERLOTINIB (ERLOTINIB) [Suspect]
     Indication: NON-SMALL CELL LUNG CANCER
     Dosage: 150 MG 1X PER DAY; ORAL
     Route: 048
     Dates: start: 20050822

REACTIONS (3)
  - APHASIA [None]
  - DRUG INTERACTION [None]
  - HYPOGLYCAEMIA [None]
